FAERS Safety Report 23265671 (Version 1)
Quarter: 2023Q4

REPORT INFORMATION
  Report Type: Spontaneous
  Country: US (occurrence: US)
  Receive Date: 20231206
  Receipt Date: 20231206
  Transmission Date: 20240110
  Serious: No
  Sender: FDA-Public Use
  Company Number: US-CELLTRION INC.-2023US019933

PATIENT

DRUGS (2)
  1. TRUXIMA [Suspect]
     Active Substance: RITUXIMAB-ABBS
     Indication: Anti-neutrophil cytoplasmic antibody positive vasculitis
     Dosage: 500 MG DOSE Q 14 DAYS
     Dates: start: 20230616
  2. TRUXIMA [Suspect]
     Active Substance: RITUXIMAB-ABBS
     Dosage: 500 MG DOSE Q 14 DAYS
     Dates: start: 20230630

REACTIONS (1)
  - Off label use [Unknown]
